FAERS Safety Report 7797585-4 (Version None)
Quarter: 2011Q4

REPORT INFORMATION
  Report Type: 
  Country: None (occurrence: None)
  Receive Date: 20111003
  Receipt Date: 20100917
  Transmission Date: 20120403
  Serious: No
  Sender: FDA-Public Use
  Company Number: AEUSA201000357

PATIENT
  Age: 30 Year
  Sex: Female

DRUGS (1)
  1. HYPERRHO [Suspect]
     Indication: PROPHYLAXIS AGAINST RH ISOIMMUNISATION
     Dosage: 1500 IU;1X;IM
     Route: 030
     Dates: start: 20100916, end: 20100916

REACTIONS (3)
  - BLOOD PRESSURE DECREASED [None]
  - INJECTION SITE URTICARIA [None]
  - TINNITUS [None]
